FAERS Safety Report 23579544 (Version 1)
Quarter: 2024Q1

REPORT INFORMATION
  Report Type: Spontaneous
  Country: IN (occurrence: IN)
  Receive Date: 20240229
  Receipt Date: 20240229
  Transmission Date: 20240410
  Serious: Yes (Hospitalization)
  Sender: FDA-Public Use
  Company Number: IN-STRIDES ARCOLAB LIMITED-2024SP002382

PATIENT
  Age: 23 Year
  Sex: Female

DRUGS (15)
  1. PREDNISOLONE [Suspect]
     Active Substance: PREDNISOLONE
     Indication: Meningitis tuberculous
     Dosage: UNK
     Route: 065
  2. ISONIAZID [Suspect]
     Active Substance: ISONIAZID
     Indication: Meningitis tuberculous
     Dosage: UNK
     Route: 065
  3. ISONIAZID [Suspect]
     Active Substance: ISONIAZID
     Dosage: UNK (REINITIATED)
     Route: 065
  4. RIFAMPIN [Suspect]
     Active Substance: RIFAMPIN
     Indication: Meningitis tuberculous
     Dosage: 600 MILLIGRAM/DAY
     Route: 065
  5. RIFAMPIN [Suspect]
     Active Substance: RIFAMPIN
     Dosage: UNK (REINITIATED)
     Route: 065
  6. PYRAZINAMIDE [Suspect]
     Active Substance: PYRAZINAMIDE
     Indication: Meningitis tuberculous
     Dosage: UNK
     Route: 065
  7. ETHAMBUTOL [Suspect]
     Active Substance: ETHAMBUTOL HYDROCHLORIDE
     Indication: Meningitis tuberculous
     Dosage: UNK
     Route: 065
  8. MILTEFOSINE [Suspect]
     Active Substance: MILTEFOSINE
     Indication: Acanthamoeba infection
     Dosage: 50 MILLIGRAM, BID
     Route: 065
     Dates: start: 2023
  9. MILTEFOSINE [Suspect]
     Active Substance: MILTEFOSINE
     Indication: Encephalitis
  10. COTRIMOXAZOLE [Suspect]
     Active Substance: SULFAMETHOXAZOLE\TRIMETHOPRIM
     Indication: Acanthamoeba infection
     Dosage: UNK, COTRIMOXAZOLE (TRIMETHOPRIM/SULFAMETHOXAZOLE) 160/800MG, BID
     Route: 065
     Dates: start: 2023
  11. COTRIMOXAZOLE [Suspect]
     Active Substance: SULFAMETHOXAZOLE\TRIMETHOPRIM
     Indication: Encephalitis
  12. FLUCONAZOLE [Suspect]
     Active Substance: FLUCONAZOLE
     Indication: Acanthamoeba infection
     Dosage: 400 MILLIGRAM/DAY
     Route: 065
     Dates: start: 2023
  13. FLUCONAZOLE [Suspect]
     Active Substance: FLUCONAZOLE
     Indication: Encephalitis
     Dosage: UNK (REINITIATED)
     Route: 065
  14. DEXAMETHASONE [Suspect]
     Active Substance: DEXAMETHASONE
     Indication: Acanthamoeba infection
     Dosage: 0.4 MILLIGRAM/KILOGRAM
     Route: 042
     Dates: start: 2023
  15. DEXAMETHASONE [Suspect]
     Active Substance: DEXAMETHASONE
     Indication: Encephalitis

REACTIONS (4)
  - Hepatotoxicity [Recovered/Resolved]
  - Hypertransaminasaemia [Recovered/Resolved]
  - Encephalitis [Recovered/Resolved]
  - Acanthamoeba infection [Recovered/Resolved]

NARRATIVE: CASE EVENT DATE: 20230101
